FAERS Safety Report 19029915 (Version 1)
Quarter: 2021Q1

REPORT INFORMATION
  Report Type: Report from Study
  Country: PK (occurrence: PK)
  Receive Date: 20210318
  Receipt Date: 20210318
  Transmission Date: 20210420
  Serious: Yes (Death)
  Sender: FDA-Public Use
  Company Number: NVSC2021PK062062

PATIENT
  Age: 47 Year
  Sex: Male
  Weight: 63 kg

DRUGS (1)
  1. TASIGNA [Suspect]
     Active Substance: NILOTINIB
     Indication: GASTROINTESTINAL STROMAL TUMOUR
     Dosage: 200 MG, QID (2+0+2) (800 MG A DAY)
     Route: 048
     Dates: start: 20200303

REACTIONS (6)
  - Malignant neoplasm progression [Fatal]
  - Platelet count increased [Unknown]
  - Product use in unapproved indication [Unknown]
  - Gastrointestinal stromal tumour [Fatal]
  - Haemoglobin decreased [Unknown]
  - White blood cell count increased [Unknown]

NARRATIVE: CASE EVENT DATE: 20200303
